FAERS Safety Report 7980234-X (Version None)
Quarter: 2011Q4

REPORT INFORMATION
  Report Type: 
  Country: None (occurrence: None)
  Receive Date: 20111214
  Receipt Date: 20111208
  Transmission Date: 20120403
  Serious: Yes (Other)
  Sender: FDA-Public Use
  Company Number: KR-ABBOTT-11P-286-0881866-00

PATIENT
  Age: 37 Year
  Sex: Male

DRUGS (7)
  1. VALPROATE SODIUM [Suspect]
     Dosage: 900 MG DAILY
  2. VALPROATE SODIUM [Suspect]
     Indication: CONVULSION PROPHYLAXIS
     Dates: start: 20080101
  3. DULOXETINE HYDROCHLORIDE [Suspect]
     Dosage: 60 MG DAILY
  4. VALPROATE SODIUM [Suspect]
     Dosage: 1200 MG DAILY
     Dates: start: 20090401
  5. DULOXETINE HYDROCHLORIDE [Suspect]
     Indication: MAJOR DEPRESSION
     Dates: start: 20090701
  6. QUETIAPINE [Concomitant]
     Indication: PRODUCT USED FOR UNKNOWN INDICATION
     Dosage: 400 MG DAILY
     Dates: start: 20090401
  7. VENLAFAXINE [Concomitant]
     Indication: PRODUCT USED FOR UNKNOWN INDICATION
     Dosage: 75 MG DAILY
     Dates: start: 20090401, end: 20090701

REACTIONS (3)
  - ASPARTATE AMINOTRANSFERASE INCREASED [None]
  - ALANINE AMINOTRANSFERASE INCREASED [None]
  - HEPATOTOXICITY [None]
